FAERS Safety Report 9761655 (Version 1)
Quarter: 2013Q4

REPORT INFORMATION
  Report Type: Spontaneous
  Country: TN (occurrence: None)
  Receive Date: 20131212
  Receipt Date: 20131212
  Transmission Date: 20140711
  Serious: Yes (Other)
  Sender: FDA-Public Use
  Company Number: 2013P1021810

PATIENT
  Age: 22 Year
  Sex: Male

DRUGS (2)
  1. ETHAMBUTOL [Suspect]
     Indication: TUBERCULOSIS
  2. ISONIAZID [Suspect]
     Indication: TUBERCULOSIS

REACTIONS (1)
  - Renal failure acute [None]
